FAERS Safety Report 5999909-7 (Version None)
Quarter: 2008Q4

REPORT INFORMATION
  Report Type: 
  Country: None (occurrence: None)
  Receive Date: 20081215
  Receipt Date: 20081205
  Transmission Date: 20090506
  Serious: Yes (Hospitalization, Other)
  Sender: FDA-Public Use
  Company Number: PHHY2008IE30475

PATIENT
  Sex: Female

DRUGS (6)
  1. CLOZARIL [Suspect]
     Indication: SCHIZOPHRENIA
     Dosage: UNK
     Dates: start: 20080909
  2. CLOZARIL [Suspect]
     Dosage: 450MG
  3. CLOZARIL [Suspect]
     Dosage: 100MG MANE AND 150MG NOCTE
  4. CLOZARIL [Suspect]
     Dosage: 250 MG DAILY
  5. CLOZARIL [Suspect]
     Dosage: 100 MG, BID
  6. LITHIUM [Concomitant]
     Indication: BIPOLAR DISORDER
     Dosage: UNK
     Dates: end: 20081014

REACTIONS (5)
  - CONFUSIONAL STATE [None]
  - DYSKINESIA [None]
  - FALL [None]
  - INCONTINENCE [None]
  - MYOCLONUS [None]
